FAERS Safety Report 23645898 (Version 1)
Quarter: 2024Q1

REPORT INFORMATION
  Report Type: Spontaneous
  Country: FR (occurrence: None)
  Receive Date: 20240319
  Receipt Date: 20240319
  Transmission Date: 20240410
  Serious: Yes (Disabling)
  Sender: FDA-Public Use
  Company Number: 2024A059273

PATIENT
  Age: 50 Year
  Sex: Male
  Weight: 84.5 kg

DRUGS (2)
  1. XIGDUO XR [Suspect]
     Active Substance: DAPAGLIFLOZIN PROPANEDIOL\METFORMIN HYDROCHLORIDE
     Indication: Type 2 diabetes mellitus
     Dosage: 1 MATIN +1 SOIR
     Route: 048
     Dates: start: 202310
  2. METFORMIN HYDROCHLORIDE [Concomitant]
     Active Substance: METFORMIN HYDROCHLORIDE
     Indication: Type 2 diabetes mellitus
     Dosage: 1 CP MATIN ET SOIR
     Dates: start: 20240205

REACTIONS (2)
  - Necrosis [Recovered/Resolved with Sequelae]
  - Toe amputation [Not Recovered/Not Resolved]

NARRATIVE: CASE EVENT DATE: 20240101
